FAERS Safety Report 7965306-8 (Version None)
Quarter: 2011Q4

REPORT INFORMATION
  Report Type: 
  Country: None (occurrence: None)
  Receive Date: 20111208
  Receipt Date: 20111128
  Transmission Date: 20120403
  Serious: Yes (Hospitalization)
  Sender: FDA-Public Use
  Company Number: US-BAYER-201042082NA

PATIENT
  Age: 32 Year
  Sex: Female
  Weight: 74 kg

DRUGS (10)
  1. FLUCONAZOLE [Concomitant]
     Indication: ANTIBIOTIC THERAPY
     Dosage: UNK
     Dates: start: 20050101, end: 20090101
  2. DICLOFENAC AL [Concomitant]
     Indication: ARTHRITIS
     Dosage: UNK
     Route: 048
     Dates: start: 20050101, end: 20100101
  3. ACETAMINOPHEN W/ PROPOXYPHENE HCL [Concomitant]
     Indication: PAIN
     Dosage: UNK
     Route: 048
     Dates: start: 20081016
  4. SKELAXIN [Concomitant]
     Indication: PAIN
     Dosage: 800 MG, UNK
     Dates: start: 20080906
  5. YAZ [Suspect]
     Indication: ORAL CONTRACEPTION
     Dosage: UNK UNK, UNK
     Route: 048
     Dates: start: 20080301, end: 20090101
  6. CYANOCOBALAMIN [Concomitant]
     Indication: ANAEMIA
     Dosage: UNK
     Dates: start: 20080101, end: 20100101
  7. VITAMIN B COMPLEX COX [Concomitant]
     Indication: MEDICAL DIET
     Dosage: UNK
     Route: 048
     Dates: start: 20081101
  8. PHENTERMINE [Concomitant]
     Dosage: 375 MG, QD
     Route: 048
     Dates: start: 20060101, end: 20080906
  9. YAZ [Suspect]
     Indication: PREMENSTRUAL SYNDROME
  10. ACIPHEX [Concomitant]
     Indication: PAIN
     Dosage: 20 MG, UNK
     Route: 048
     Dates: end: 20081102

REACTIONS (2)
  - CHOLECYSTITIS CHRONIC [None]
  - GALLBLADDER NON-FUNCTIONING [None]
